FAERS Safety Report 8176430-1 (Version None)
Quarter: 2012Q1

REPORT INFORMATION
  Report Type: 
  Country: None (occurrence: None)
  Receive Date: 20120301
  Receipt Date: 20120221
  Transmission Date: 20120608
  Serious: Yes (Hospitalization, Other)
  Sender: FDA-Public Use
  Company Number: CZ-ASTRAZENECA-2012SE09656

PATIENT
  Age: 24073 Day
  Sex: Male

DRUGS (31)
  1. PLAVIX [Suspect]
     Indication: CORONARY ARTERY DISEASE
     Route: 048
     Dates: start: 20111123, end: 20111208
  2. ASPIRIN [Suspect]
     Route: 048
     Dates: end: 20111212
  3. INSULINUM GLARGINUM [Concomitant]
     Indication: DIABETES MELLITUS
     Route: 058
  4. AMOXICILLIN + ACIDUM CLAVULANICUM [Concomitant]
     Indication: PYREXIA
     Route: 042
     Dates: start: 20111206, end: 20120120
  5. AMIODARONE HCL [Concomitant]
     Indication: ATRIAL FIBRILLATION
     Route: 048
     Dates: start: 20111212
  6. ATORVASTATIN [Concomitant]
     Indication: HYPERLIPIDAEMIA
     Route: 048
     Dates: end: 20111212
  7. FENOFIBRATE [Concomitant]
     Indication: HYPERLIPIDAEMIA
     Route: 048
     Dates: end: 20111208
  8. PERINDOPRIL ERBUMINE [Concomitant]
     Indication: HYPERTENSION
     Route: 048
     Dates: end: 20111208
  9. TIMOLOL MALEATE [Concomitant]
     Indication: DIABETIC RETINOPATHY
     Route: 047
  10. DOBUTAMIN [Concomitant]
     Indication: HYPOTENSION
     Route: 042
     Dates: start: 20111210, end: 20111214
  11. FUROSEMIDE [Concomitant]
     Indication: RENAL FAILURE
     Route: 042
     Dates: start: 20111210, end: 20111211
  12. ACETAMINOPHEN [Concomitant]
     Indication: PYREXIA
     Route: 048
     Dates: start: 20111206, end: 20111207
  13. AMILORIDE HYDROCHLORIDE [Suspect]
     Indication: HYPERTENSION
     Route: 048
     Dates: end: 20111207
  14. PENTOXIFYLLINE [Concomitant]
     Indication: ANGIOPATHY
     Route: 048
     Dates: end: 20111208
  15. INSULINUM GLULISINUM [Concomitant]
     Indication: DIABETES MELLITUS
     Route: 058
  16. BIMATOPROSTUM [Concomitant]
     Indication: DIABETIC RETINOPATHY
     Route: 047
  17. NORADRENALIN [Concomitant]
     Indication: HYPOTENSION
     Route: 042
     Dates: start: 20111210, end: 20111215
  18. ENOXAPARIN [Concomitant]
     Indication: THROMBOSIS PROPHYLAXIS
     Route: 058
     Dates: start: 20111208, end: 20111213
  19. BISOPROLOL FUMARATE [Concomitant]
     Indication: MYOCARDIAL INFARCTION
     Route: 048
     Dates: end: 20111212
  20. AMLODIPINE [Concomitant]
     Indication: HYPERTENSION
     Route: 048
     Dates: end: 20111208
  21. DIGOXIN [Concomitant]
     Indication: ATRIAL FIBRILLATION
     Route: 042
     Dates: start: 20111210, end: 20111210
  22. CIPROFLOXACIN [Concomitant]
     Indication: PYREXIA
     Route: 042
     Dates: start: 20111210, end: 20111230
  23. METOPROLOL SUCCINATE [Concomitant]
     Indication: ATRIAL FIBRILLATION
     Route: 048
     Dates: start: 20111212
  24. DORZOLAMIDUM [Concomitant]
     Indication: DIABETIC RETINOPATHY
     Route: 047
  25. ALLOPURINOL [Concomitant]
     Indication: HYPERURICAEMIA
     Route: 048
     Dates: end: 20111212
  26. CIPROFLOXACIN [Concomitant]
     Indication: BRONCHOPNEUMONIA
     Route: 042
     Dates: start: 20111210, end: 20111230
  27. HYDROCHLOROTHIAZIDE [Suspect]
     Indication: HYPERTENSION
     Route: 048
     Dates: end: 20111207
  28. LOSARTAN POTASSIUM [Concomitant]
     Indication: HYPERTENSION
     Route: 048
     Dates: end: 20111206
  29. EPINEPHRINE [Concomitant]
     Indication: DUODENAL ULCER HAEMORRHAGE
     Dates: start: 20111213, end: 20111213
  30. PANTOPRAZOLE [Concomitant]
     Indication: GASTROINTESTINAL HAEMORRHAGE
     Route: 048
     Dates: start: 20111213
  31. PARACETAMOLUM [Concomitant]
     Indication: PYREXIA
     Route: 048
     Dates: start: 20111208, end: 20111228

REACTIONS (5)
  - OSTEOMYELITIS [None]
  - BRONCHOPNEUMONIA [None]
  - GASTROINTESTINAL HAEMORRHAGE [None]
  - TRAUMATIC HAEMATOMA [None]
  - RENAL FAILURE [None]
